FAERS Safety Report 5927487-7 (Version None)
Quarter: 2008Q4

REPORT INFORMATION
  Report Type: 
  Country: None (occurrence: None)
  Receive Date: 20081021
  Receipt Date: 20081021
  Transmission Date: 20090506
  Serious: Yes (Other)
  Sender: FDA-Public Use
  Company Number: None

PATIENT
  Age: 17 Year
  Sex: Female
  Weight: 90.7194 kg

DRUGS (2)
  1. CLINDAMYCIN HCL [Suspect]
     Indication: INFECTION
     Dosage: 300 MG 3 TIMES DAILY PO
     Route: 048
     Dates: start: 20081017, end: 20081019
  2. CLINDAMYCIN HCL [Suspect]
     Indication: UPPER EXTREMITY MASS
     Dosage: 300 MG 3 TIMES DAILY PO
     Route: 048
     Dates: start: 20081017, end: 20081019

REACTIONS (2)
  - DRUG HYPERSENSITIVITY [None]
  - VOMITING [None]
